FAERS Safety Report 6766713-1 (Version None)
Quarter: 2010Q2

REPORT INFORMATION
  Report Type: 
  Country: None (occurrence: None)
  Receive Date: 20100611
  Receipt Date: 20100527
  Transmission Date: 20101027
  Serious: Yes (Death, Hospitalization, Other)
  Sender: FDA-Public Use
  Company Number: US-ALEXION-A201000443

PATIENT
  Sex: Male
  Weight: 16 kg

DRUGS (21)
  1. SOLIRIS [Suspect]
     Indication: HAEMOLYTIC URAEMIC SYNDROME
     Dosage: 300 MG, Q7-10 DAYS
     Route: 042
     Dates: start: 20090609, end: 20091101
  2. SOLIRIS [Suspect]
     Dosage: 300 MG, Q14 DAYS
     Route: 042
     Dates: start: 20091101, end: 20100413
  3. KLONOPIN [Concomitant]
     Dosage: 0.125 MG, QD (QHS)
     Route: 048
  4. CALCIUM CARBONATE [Concomitant]
     Dosage: 250 MG, QD
     Route: 048
  5. MYLICON [Concomitant]
     Dosage: 40 MG, QID, PRN
     Route: 048
  6. COLACE [Concomitant]
     Indication: CONSTIPATION
     Dosage: 20 MG, QD (QHS) PRN
     Route: 048
  7. VASOTEC [Concomitant]
     Indication: BLOOD PRESSURE MANAGEMENT
     Dosage: 0.5 MG, Q12H PRN
     Route: 048
  8. PREVACID [Concomitant]
     Dosage: 15 MG, QD
     Route: 048
  9. POTASSIUM CHLORIDE [Concomitant]
     Dosage: 5.32 MEQ, BID DURING GT FEED
     Route: 048
  10. ROCALTROL [Concomitant]
     Dosage: 0.25 UG, Q48H
     Route: 048
  11. VITAMIN D2 [Concomitant]
     Dosage: 2000 IU, QD
     Route: 048
  12. ARANESP [Concomitant]
     Dosage: 25 UG, Q WEEK
     Route: 058
  13. MERREM                             /01250501/ [Concomitant]
     Dosage: 300 MG, TID (Q8H)
     Route: 042
  14. KEPPRA [Concomitant]
     Dosage: 100 MG, BID
     Route: 048
  15. KEPPRA [Concomitant]
     Dosage: 200 MG, QD
     Route: 048
  16. KEPPRA [Concomitant]
     Dosage: 1 ML, BID (Q12H), WEANED AS DIRECTED PER NEUROLOGIST
     Route: 039
  17. IMMUNE GLOBULIN NOS [Concomitant]
     Indication: HAEMOLYTIC URAEMIC SYNDROME
     Dosage: 14 G, Q4 WEEKS
     Route: 042
  18. AQUAPHOR                           /00298701/ [Concomitant]
     Dosage: UNK
  19. ZOFRAN [Concomitant]
     Indication: VOMITING
     Dosage: 1.5 MG, TID (Q8H) PRN
     Route: 048
  20. PENICILLIN VK                      /00001802/ [Concomitant]
     Dosage: 5 ML, BID (Q12H)
     Route: 048
  21. TYLENOL (CAPLET) [Concomitant]
     Dosage: 225 MG, PRN Q4H
     Route: 048

REACTIONS (5)
  - ABDOMINAL PAIN [None]
  - ACUTE DISSEMINATED ENCEPHALOMYELITIS [None]
  - PULMONARY HAEMORRHAGE [None]
  - RESPIRATORY FAILURE [None]
  - URINARY TRACT INFECTION [None]
